FAERS Safety Report 16460448 (Version 3)
Quarter: 2019Q3

REPORT INFORMATION
  Report Type: Spontaneous
  Country: AE (occurrence: AE)
  Receive Date: 20190620
  Receipt Date: 20190703
  Transmission Date: 20191004
  Serious: Yes (Other)
  Sender: FDA-Public Use
  Company Number: AE-AMGEN-ARESP2017067791

PATIENT
  Age: 60 Year
  Sex: Female

DRUGS (14)
  1. EUTHYROX [Concomitant]
     Active Substance: LEVOTHYROXINE SODIUM
     Indication: HYPOTHYROIDISM
     Dosage: 100 MILLIGRAM, QD, ONE TABLET, SINCE 12 YEARS
  2. ARCOXIA [Concomitant]
     Active Substance: ETORICOXIB
     Indication: PAIN
     Dosage: 90 MILLIGRAM, ONE TABLET, WHEN REQUIRED
  3. ENBREL [Suspect]
     Active Substance: ETANERCEPT
     Dosage: 50 MILLIGRAM, QWK
     Route: 058
     Dates: start: 20130413
  4. IZRA [Concomitant]
     Indication: HYPERCHLORHYDRIA
     Dosage: 20 MILLIGRAM ONE TABLET WHEN REQUIRED,
  5. FOLITRAX [METHOTREXATE SODIUM] [Concomitant]
     Indication: RHEUMATOID ARTHRITIS
     Dosage: 15 MILLIGRAM,1 TABLET ONCE WEEKLY SINCE 5 YEARS
  6. GEMCAL [CALCITRIOL;CALCIUM CARBIMIDE CITRATE;ZINC] [Concomitant]
     Indication: VITAMIN SUPPLEMENTATION
     Dosage: 1 DOSAGE FORM, QD, 1 CAPSULE, 1X/DAY, SINCE 2 YEARS
  7. CHOLECALCIFEROL [Concomitant]
     Active Substance: CHOLECALCIFEROL
     Indication: VITAMIN SUPPLEMENTATION
     Dosage: 1 GRAM, QWK, SINCE 2 YEARS
  8. ARTELAC ADVANCED [Concomitant]
     Indication: DRY EYE
     Dosage: 2 GTT DROPS, TID, FOR BOTH EYES
  9. ENBREL [Suspect]
     Active Substance: ETANERCEPT
     Dosage: 50 MILLIGRAM, EVERY 10 DAYS
     Route: 058
     Dates: start: 20190411
  10. GEMCAL [Concomitant]
     Active Substance: CALCIUM
     Indication: VITAMIN SUPPLEMENTATION
     Dosage: 1 DOSAGE FORM, QD, 1 CAPSULE, 1X/DAY, SINCE 2 YEARS
  11. FOLITRAX [METHOTREXATE SODIUM] [Concomitant]
     Indication: RHEUMATOID ARTHRITIS
     Dosage: 15 MILLIGRAM 1 TABLET ONCE WEEKLY SINCE 5 YEARS
     Route: 065
  12. AMLODIPIN [AMLODIPINE BESILATE] [Concomitant]
     Indication: HYPERTENSION
     Dosage: 5 MILLIGRAM,  1 TABLET , 1X/DAY, SINCE 2 YEARS
  13. ENBREL [Suspect]
     Active Substance: ETANERCEPT
     Indication: RHEUMATOID ARTHRITIS
     Dosage: 50 MILLIGRAM, QWK
     Route: 058
  14. FOLIC ACID. [Concomitant]
     Active Substance: FOLIC ACID
     Indication: ADVERSE DRUG REACTION
     Dosage: 5 MILLIGRAM, QD, SINCE 5 YEAR

REACTIONS (5)
  - Product use issue [Unknown]
  - Cough [Recovered/Resolved]
  - Lower respiratory tract infection [Recovered/Resolved]
  - Pharyngitis [Recovered/Resolved]
  - Off label use [Unknown]

NARRATIVE: CASE EVENT DATE: 20130413
